FAERS Safety Report 9749185 (Version 2)
Quarter: 2014Q1

REPORT INFORMATION
  Report Type: Spontaneous
  Country: US (occurrence: US)
  Receive Date: 20131212
  Receipt Date: 20140312
  Transmission Date: 20141002
  Serious: No
  Sender: FDA-Public Use
  Company Number: US-INCYTE CORPORATION-2013IN002478

PATIENT
  Sex: Male

DRUGS (6)
  1. JAKAFI [Suspect]
     Indication: MYELOFIBROSIS
     Dosage: 15 MG, BID
     Route: 048
     Dates: start: 20130818, end: 20130911
  2. JAKAFI [Suspect]
     Dosage: 5 MG, BID
     Route: 048
     Dates: start: 20130912
  3. FENTANYL [Concomitant]
     Indication: ARTHRALGIA
     Route: 062
  4. OMEPRAZOLE [Concomitant]
  5. BENADRYL [Concomitant]
  6. HYDROCODONE [Concomitant]

REACTIONS (3)
  - Pain in extremity [Recovering/Resolving]
  - Drug dose omission [Unknown]
  - Thrombocytopenia [Recovering/Resolving]
